FAERS Safety Report 11029431 (Version 1)
Quarter: 2015Q2

REPORT INFORMATION
  Report Type: Spontaneous
  Country: US (occurrence: US)
  Receive Date: 20150415
  Receipt Date: 20150415
  Transmission Date: 20150821
  Serious: No
  Sender: FDA-Public Use
  Company Number: US-AMGEN-USASP2015036068

PATIENT
  Sex: Female

DRUGS (2)
  1. ENBREL [Suspect]
     Active Substance: ETANERCEPT
     Indication: JUVENILE IDIOPATHIC ARTHRITIS
     Dosage: 50 MG, ONCE EVERY TWO WEEKS
     Route: 065
  2. NABUMETONE. [Concomitant]
     Active Substance: NABUMETONE
     Indication: JUVENILE IDIOPATHIC ARTHRITIS
     Dosage: 500 MG, TWICE A DAY

REACTIONS (1)
  - Infection [Unknown]
